FAERS Safety Report 18578124 (Version 1)
Quarter: 2020Q4

REPORT INFORMATION
  Report Type: Spontaneous
  Country: US (occurrence: US)
  Receive Date: 20201204
  Receipt Date: 20201204
  Transmission Date: 20210114
  Serious: No
  Sender: FDA-Public Use
  Company Number: US-JNJFOC-20201145799

PATIENT
  Sex: Female

DRUGS (1)
  1. ELMIRON [Suspect]
     Active Substance: PENTOSAN POLYSULFATE SODIUM
     Indication: PRODUCT USED FOR UNKNOWN INDICATION
     Route: 065
     Dates: start: 200402, end: 201810

REACTIONS (7)
  - Loss of personal independence in daily activities [Unknown]
  - Altered visual depth perception [Unknown]
  - Visual field defect [Unknown]
  - Impaired driving ability [Unknown]
  - Visual impairment [Unknown]
  - Night blindness [Unknown]
  - Colour blindness [Unknown]
